FAERS Safety Report 21166058 (Version 1)
Quarter: 2022Q3

REPORT INFORMATION
  Report Type: Spontaneous
  Country: US (occurrence: None)
  Receive Date: 20220802
  Receipt Date: 20220802
  Transmission Date: 20221026
  Serious: No
  Sender: FDA-Public Use
  Company Number: None

PATIENT
  Sex: 0

DRUGS (1)
  1. CITROMA MAGNESIUM CITRATE [Suspect]
     Active Substance: MAGNESIUM CITRATE
     Route: 048

REACTIONS (3)
  - Muscle atrophy [None]
  - Recalled product [None]
  - Gastrointestinal sounds abnormal [None]
